FAERS Safety Report 9983532 (Version 4)
Quarter: 2014Q2

REPORT INFORMATION
  Report Type: Report from Study
  Country: CA (occurrence: CA)
  Receive Date: 20140307
  Receipt Date: 20140402
  Transmission Date: 20141212
  Serious: Yes (Hospitalization)
  Sender: FDA-Public Use
  Company Number: PHHY2014CA006384

PATIENT
  Sex: Female

DRUGS (2)
  1. AFINITOR [Suspect]
     Indication: PANCREATIC NEUROENDOCRINE TUMOUR
     Dosage: 10 MG, QD
     Route: 048
     Dates: start: 20140104, end: 20140207
  2. AFINITOR [Suspect]
     Dosage: 10 MG, QOD
     Route: 048

REACTIONS (24)
  - Dizziness [Unknown]
  - Aphagia [Unknown]
  - Decreased appetite [Unknown]
  - Dysgeusia [Unknown]
  - Nasopharyngitis [Unknown]
  - Rash [Unknown]
  - Nausea [Unknown]
  - Muscle spasms [Unknown]
  - Vocal cord disorder [Unknown]
  - Glossodynia [Unknown]
  - Oropharyngeal pain [Unknown]
  - Immunodeficiency [Unknown]
  - Drug intolerance [Unknown]
  - Lung disorder [Unknown]
  - Insomnia [Unknown]
  - Abdominal pain upper [Not Recovered/Not Resolved]
  - Diarrhoea [Unknown]
  - Stomatitis [Unknown]
  - Pyrexia [Unknown]
  - Influenza [Unknown]
  - Dyspnoea [Unknown]
  - Metastases to liver [Unknown]
  - Metastases to peritoneum [Unknown]
  - Drug ineffective [Unknown]
